FAERS Safety Report 14578188 (Version 3)
Quarter: 2018Q2

REPORT INFORMATION
  Report Type: Report from Study
  Country: CA (occurrence: CA)
  Receive Date: 20180227
  Receipt Date: 20180420
  Transmission Date: 20180711
  Serious: Yes (Other)
  Sender: FDA-Public Use
  Company Number: CA-BRISTOL-MYERS SQUIBB COMPANY-BMS-2017-096477

PATIENT
  Age: 52 Year
  Sex: Female

DRUGS (3)
  1. ABATACEPT [Suspect]
     Active Substance: ABATACEPT
     Indication: PRODUCT USED FOR UNKNOWN INDICATION
     Dosage: 750 MG, Q4WK
     Route: 042
     Dates: start: 20170301
  2. METHOTREXATE. [Concomitant]
     Active Substance: METHOTREXATE
     Indication: PRODUCT USED FOR UNKNOWN INDICATION
     Dosage: UNK, QWK
     Route: 065
  3. ABATACEPT [Suspect]
     Active Substance: ABATACEPT
     Indication: RHEUMATOID ARTHRITIS
     Dosage: 750 MG, Q4WK
     Route: 042
     Dates: start: 20141204

REACTIONS (8)
  - Myalgia [Recovering/Resolving]
  - Cough [Unknown]
  - Pyrexia [Recovering/Resolving]
  - Cystitis [Recovering/Resolving]
  - Viral infection [Unknown]
  - Chest discomfort [Recovering/Resolving]
  - Adverse event [Not Recovered/Not Resolved]
  - Malaise [Unknown]

NARRATIVE: CASE EVENT DATE: 20180210
